FAERS Safety Report 5379419-0 (Version None)
Quarter: 2007Q3

REPORT INFORMATION
  Report Type: 
  Country: None (occurrence: None)
  Receive Date: 20070705
  Receipt Date: 20070628
  Transmission Date: 20080115
  Serious: Yes (Death, Other)
  Sender: FDA-Public Use
  Company Number: KR-MERCK-0705KOR00037

PATIENT
  Age: 61 Year
  Sex: Male
  Weight: 67 kg

DRUGS (23)
  1. CANCIDAS [Suspect]
     Indication: ASPERGILLOSIS
     Route: 042
     Dates: start: 20070512, end: 20070604
  2. PIPERACILLIN SODIUM AND TAZOBACTAM SODIUM [Concomitant]
     Indication: PNEUMONIA
     Route: 065
     Dates: start: 20070420, end: 20070514
  3. PIPERACILLIN SODIUM AND TAZOBACTAM SODIUM [Concomitant]
     Route: 065
     Dates: start: 20070523, end: 20070611
  4. AMPHOTERICIN B [Concomitant]
     Indication: PNEUMONIA
     Route: 065
     Dates: start: 20070423, end: 20070510
  5. LEVOFLOXACIN [Concomitant]
     Indication: PNEUMONIA
     Route: 065
     Dates: start: 20070428, end: 20070611
  6. DEXAMETHASONE [Concomitant]
     Indication: RENAL CELL CARCINOMA STAGE UNSPECIFIED
     Route: 065
     Dates: start: 20070421, end: 20070615
  7. RANITIDINE [Concomitant]
     Indication: GASTRITIS PROPHYLAXIS
     Route: 065
     Dates: start: 20070421, end: 20070519
  8. RANITIDINE [Concomitant]
     Route: 065
     Dates: start: 20070520, end: 20070617
  9. SIMETHICONE [Concomitant]
     Indication: DYSPEPSIA
     Route: 065
     Dates: start: 20070421, end: 20070615
  10. OXOLAMINE [Concomitant]
     Indication: PNEUMONIA
     Route: 065
     Dates: start: 20070505, end: 20070605
  11. AMBROXOL [Concomitant]
     Indication: PNEUMONIA
     Route: 065
     Dates: start: 20070505, end: 20070520
  12. AMBROXOL [Concomitant]
     Route: 065
     Dates: start: 20070520, end: 20070616
  13. GABAPENTIN [Concomitant]
     Indication: ANTICONVULSANT DRUG LEVEL
     Route: 065
     Dates: start: 20070427, end: 20070615
  14. CARBAMAZEPINE [Concomitant]
     Indication: ANTICONVULSANT DRUG LEVEL
     Route: 065
     Dates: start: 20070509, end: 20070519
  15. MAGNESIUM OXIDE [Concomitant]
     Indication: CONSTIPATION
     Route: 065
     Dates: start: 20070422
  16. ALFUZOSIN HYDROCHLORIDE [Concomitant]
     Indication: BENIGN PROSTATIC HYPERPLASIA
     Route: 065
     Dates: start: 20070502, end: 20070522
  17. ALFUZOSIN HYDROCHLORIDE [Concomitant]
     Route: 065
     Dates: start: 20070525, end: 20070615
  18. CIPROFLOXACIN [Concomitant]
     Indication: PNEUMONIA
     Route: 065
     Dates: start: 20070420
  19. VORICONAZOLE [Concomitant]
     Indication: PNEUMONIA
     Route: 065
     Dates: start: 20070605, end: 20070615
  20. ACYCLOVIR [Concomitant]
     Indication: KERATITIS HERPETIC
     Route: 065
     Dates: start: 20070526, end: 20070615
  21. CEFTRIAXONE SODIUM [Concomitant]
     Indication: CYSTOSTOMY
     Route: 065
     Dates: start: 20070615, end: 20070615
  22. CEFEPIME [Concomitant]
     Indication: CYSTOSTOMY
     Route: 065
     Dates: start: 20070616, end: 20070616
  23. VANCOMYCIN [Concomitant]
     Indication: CYSTOSTOMY
     Route: 065
     Dates: start: 20070616, end: 20070616

REACTIONS (1)
  - SEPTIC SHOCK [None]
